FAERS Safety Report 5081843-0 (Version None)
Quarter: 2006Q3

REPORT INFORMATION
  Report Type: 
  Country: None (occurrence: None)
  Receive Date: 20060816
  Receipt Date: 20060814
  Transmission Date: 20061208
  Serious: Yes (Other)
  Sender: FDA-Public Use
  Company Number: NZ-MERCK-0608NZL00004

PATIENT
  Sex: Male

DRUGS (3)
  1. ZOCOR [Suspect]
     Indication: BLOOD CHOLESTEROL INCREASED
     Route: 048
  2. ZETIA [Suspect]
     Indication: BLOOD CHOLESTEROL INCREASED
     Route: 048
  3. ASPIRIN [Concomitant]
     Route: 065

REACTIONS (4)
  - CARDIAC ARREST [None]
  - HEPATOCELLULAR DAMAGE [None]
  - MUSCLE INJURY [None]
  - MYALGIA [None]
